FAERS Safety Report 7765184-6 (Version None)
Quarter: 2011Q3

REPORT INFORMATION
  Report Type: 
  Country: None (occurrence: None)
  Receive Date: 20110921
  Receipt Date: 20110916
  Transmission Date: 20111222
  Serious: Yes (Death, Hospitalization)
  Sender: FDA-Public Use
  Company Number: US-GLAXOSMITHKLINE-A0782845A

PATIENT
  Age: 59 Year
  Sex: Female
  Weight: 104.5 kg

DRUGS (7)
  1. PREDNISONE [Concomitant]
  2. ROSIGLITAZONE [Suspect]
     Indication: DIABETES MELLITUS
     Dosage: 8MG TWICE PER DAY
     Route: 048
     Dates: start: 20030912, end: 20070220
  3. GABAPENTIN [Concomitant]
  4. GLUCOTROL [Concomitant]
  5. SIMVASTATIN [Concomitant]
  6. ATENOLOL [Concomitant]
  7. METOPROLOL TARTRATE [Concomitant]

REACTIONS (11)
  - RESPIRATORY FAILURE [None]
  - ARTERIOSCLEROSIS [None]
  - CARDIOVASCULAR DISORDER [None]
  - CARDIAC FAILURE CONGESTIVE [None]
  - DEATH [None]
  - PULMONARY OEDEMA [None]
  - SEPSIS [None]
  - ACUTE MYOCARDIAL INFARCTION [None]
  - CARDIO-RESPIRATORY ARREST [None]
  - TOBACCO USER [None]
  - ACUTE CORONARY SYNDROME [None]
